FAERS Safety Report 4357446-X (Version None)
Quarter: 2004Q2

REPORT INFORMATION
  Report Type: 
  Country: None (occurrence: None)
  Receive Date: 20040513
  Receipt Date: 20040422
  Transmission Date: 20050107
  Serious: Yes (Death, Hospitalization)
  Sender: FDA-Public Use
  Company Number: US-BRISTOL-MYERS SQUIBB COMPANY-12571485

PATIENT
  Sex: Male

DRUGS (5)
  1. ABILIFY [Suspect]
     Route: 048
  2. PARNATE [Concomitant]
  3. SEROQUEL [Concomitant]
  4. CORGARD [Concomitant]
  5. TEGRETOL [Concomitant]

REACTIONS (2)
  - AKATHISIA [None]
  - COMPLETED SUICIDE [None]
